FAERS Safety Report 7577586-1 (Version None)
Quarter: 2011Q2

REPORT INFORMATION
  Report Type: 
  Country: None (occurrence: None)
  Receive Date: 20110628
  Receipt Date: 20110620
  Transmission Date: 20111010
  Serious: Yes (Other)
  Sender: FDA-Public Use
  Company Number: DE-JNJFOC-20110600269

PATIENT
  Age: 63 Year
  Sex: Female

DRUGS (2)
  1. SIMPONI [Suspect]
     Indication: PRODUCT USED FOR UNKNOWN INDICATION
     Dosage: AUTO INJECTOR
     Route: 058
     Dates: start: 20101001
  2. SIMPONI [Suspect]
     Dosage: PRE-FILLED SYRINGE
     Route: 058
     Dates: start: 20110401

REACTIONS (2)
  - TACHYCARDIA [None]
  - HYPERHIDROSIS [None]
